FAERS Safety Report 7786823-X (Version None)
Quarter: 2011Q3

REPORT INFORMATION
  Report Type: 
  Country: None (occurrence: None)
  Receive Date: 20110928
  Receipt Date: 20110928
  Transmission Date: 20111222
  Serious: Yes (Hospitalization)
  Sender: FDA-Public Use
  Company Number: None

PATIENT
  Sex: Female
  Weight: 78 kg

DRUGS (3)
  1. CYTARABINE [Suspect]
     Dosage: 11430 MG
     Dates: end: 20110830
  2. MITOXANTRONE HYDROCHLORIDE [Suspect]
     Dosage: 38 MG
     Dates: end: 20110901
  3. TRETINOIN [Suspect]
     Dosage: 700 MG
     Dates: end: 20110911

REACTIONS (5)
  - FEBRILE NEUTROPENIA [None]
  - SEPTIC SHOCK [None]
  - STREPTOCOCCAL INFECTION [None]
  - HYPOTENSION [None]
  - RESPIRATORY DISTRESS [None]
